FAERS Safety Report 7640023-2 (Version None)
Quarter: 2011Q3

REPORT INFORMATION
  Report Type: 
  Country: None (occurrence: None)
  Receive Date: 20110727
  Receipt Date: 20110720
  Transmission Date: 20111222
  Serious: Yes (Hospitalization)
  Sender: FDA-Public Use
  Company Number: FR-MERCK-1107USA03051

PATIENT
  Age: 52 Year
  Sex: Female

DRUGS (5)
  1. BACTRIM [Concomitant]
     Route: 042
  2. ASPEGIC 325 [Concomitant]
     Route: 065
  3. ZOLPIDEM [Concomitant]
     Route: 060
  4. PRIMAXIN [Suspect]
     Indication: CENTRAL NERVOUS SYSTEM INFECTION
     Route: 042
     Dates: start: 20110407, end: 20110408
  5. MORPHINE [Concomitant]
     Indication: PAIN
     Dosage: 10
     Route: 065

REACTIONS (1)
  - LOCALISED OEDEMA [None]
